FAERS Safety Report 9010376 (Version 2)
Quarter: 2013Q1

REPORT INFORMATION
  Report Type: Spontaneous
  Country: US (occurrence: US)
  Receive Date: 20130109
  Receipt Date: 20130121
  Transmission Date: 20140127
  Serious: Yes (Death, Hospitalization)
  Sender: FDA-Public Use
  Company Number: US-GILEAD-2013-0067404

PATIENT
  Sex: Female

DRUGS (2)
  1. LETAIRIS [Suspect]
     Indication: PULMONARY HYPERTENSION
     Dosage: 10 MG, UNK
     Route: 048
     Dates: start: 20110526, end: 20121221
  2. LETAIRIS [Suspect]
     Indication: PORTOPULMONARY HYPERTENSION

REACTIONS (5)
  - Right ventricular failure [Fatal]
  - Mechanical ventilation [Unknown]
  - Endotracheal intubation [Unknown]
  - Fluid overload [Unknown]
  - Dyspnoea [Unknown]
